FAERS Safety Report 25279392 (Version 1)
Quarter: 2025Q2

REPORT INFORMATION
  Report Type: Spontaneous
  Country: US (occurrence: None)
  Receive Date: 20250507
  Receipt Date: 20250507
  Transmission Date: 20250716
  Serious: No
  Sender: FDA-CTU
  Company Number: None

PATIENT

DRUGS (1)
  1. TREMFYA [Suspect]
     Active Substance: GUSELKUMAB

REACTIONS (6)
  - Seizure [None]
  - Hypotension [None]
  - Blood glucose abnormal [None]
  - Nephrolithiasis [None]
  - Psoriasis [None]
  - Rheumatoid arthritis [None]
